FAERS Safety Report 9677777 (Version 1)
Quarter: 2013Q4

REPORT INFORMATION
  Report Type: Spontaneous
  Country: US (occurrence: None)
  Receive Date: 20131107
  Receipt Date: 20131107
  Transmission Date: 20140711
  Serious: Yes (Hospitalization)
  Sender: FDA-Public Use
  Company Number: None

PATIENT
  Age: 29 Year
  Sex: Female
  Weight: 97 kg

DRUGS (3)
  1. BACTRIM [Suspect]
     Indication: URINARY TRACT INFECTION
     Dosage: 1 TABLET 24 HOURS (2 DOSES)
     Route: 048
  2. METFORMIN [Concomitant]
  3. BISOPROLOL HYDROCHLOROTHIAZIDE [Concomitant]

REACTIONS (5)
  - Rash [None]
  - Urticaria [None]
  - Stevens-Johnson syndrome [None]
  - Blister [None]
  - Bradycardia [None]
